FAERS Safety Report 14618774 (Version 1)
Quarter: 2018Q1

REPORT INFORMATION
  Report Type: Spontaneous
  Country: NL (occurrence: NL)
  Receive Date: 20180309
  Receipt Date: 20180309
  Transmission Date: 20180509
  Serious: Yes (Other)
  Sender: FDA-Public Use
  Company Number: NL-TEVA-2018-NL-866408

PATIENT

DRUGS (1)
  1. BECLOMETASON 400 CYCLOCAPS, INHALATIEPOEDER IN PATRONEN 314 MICROGRAM ` [Suspect]
     Active Substance: BECLOMETHASONE DIPROPIONATE
     Dosage: INHALATION POWDER IN CARTRIDGES
     Route: 055

REACTIONS (3)
  - Product quality issue [Unknown]
  - Product physical issue [None]
  - Foreign body aspiration [Unknown]
